FAERS Safety Report 4830772-3 (Version None)
Quarter: 2005Q4

REPORT INFORMATION
  Report Type: 
  Country: None (occurrence: None)
  Receive Date: 20051117
  Receipt Date: 20051108
  Transmission Date: 20060501
  Serious: Yes (Other)
  Sender: FDA-Public Use
  Company Number: NL-MERCK-0511NLD00009

PATIENT
  Age: 78 Year
  Sex: Female

DRUGS (2)
  1. FOSAMAX [Suspect]
     Route: 048
     Dates: start: 20040128, end: 20040301
  2. FOSAMAX [Suspect]
     Route: 048

REACTIONS (2)
  - ABDOMINAL PAIN [None]
  - DUODENITIS [None]
